FAERS Safety Report 10731633 (Version 1)
Quarter: 2015Q1

REPORT INFORMATION
  Report Type: Spontaneous
  Country: US (occurrence: US)
  Receive Date: 20150123
  Receipt Date: 20150123
  Transmission Date: 20150721
  Serious: Yes (Other)
  Sender: FDA-Public Use
  Company Number: US-BEH-2014046324

PATIENT
  Sex: Female

DRUGS (1)
  1. HUMATE [Suspect]
     Active Substance: HUMAN COAGULATION FACTOR VIII/VON WILLEBRAND FACTOR COMPLEX

REACTIONS (7)
  - Fibromyalgia [Unknown]
  - Menorrhagia [Unknown]
  - Fall [Unknown]
  - Thyroiditis [Unknown]
  - Thyroid cancer [Unknown]
  - Contusion [Unknown]
  - Tooth infection [Unknown]
